FAERS Safety Report 4752901-2 (Version None)
Quarter: 2005Q3

REPORT INFORMATION
  Report Type: 
  Country: None (occurrence: None)
  Receive Date: 20050823
  Receipt Date: 20050811
  Transmission Date: 20060218
  Serious: Yes (Other)
  Sender: FDA-Public Use
  Company Number: HQWYE088124MAR04

PATIENT
  Age: 50 Year
  Sex: Male
  Weight: 110 kg

DRUGS (10)
  1. MYLOTARG [Suspect]
     Indication: ACUTE MYELOID LEUKAEMIA
     Dosage: 20 MG 1X PER 1 DAY, INTRAVENOUS
     Route: 042
     Dates: start: 20030407, end: 20030407
  2. DEXAMETHASONE [Concomitant]
  3. HYDROXYUREA [Concomitant]
  4. ALLOPURINLL (ALLOPURINOL) [Concomitant]
  5. FLAGYL [Concomitant]
  6. CEFEPIME (CEFEPIME) [Concomitant]
  7. BECLOMETHASONE DIPROPIONATE [Concomitant]
  8. LORATADINE [Concomitant]
  9. METOPROL (METOPROLOL) [Concomitant]
  10. INSULIN (INSULIN) [Concomitant]

REACTIONS (12)
  - ASPARTATE AMINOTRANSFERASE INCREASED [None]
  - BILIRUBIN CONJUGATED INCREASED [None]
  - BLOOD BILIRUBIN INCREASED [None]
  - CHILLS [None]
  - CONDITION AGGRAVATED [None]
  - CONFUSIONAL STATE [None]
  - HYPERHIDROSIS [None]
  - HYPOTENSION [None]
  - HYPOTHERMIA [None]
  - HYPOXIA [None]
  - MENTAL STATUS CHANGES [None]
  - TACHYCARDIA [None]
